FAERS Safety Report 9066095 (Version 1)
Quarter: 2013Q1

REPORT INFORMATION
  Report Type: Spontaneous
  Country: US (occurrence: US)
  Receive Date: 20130214
  Receipt Date: 20130214
  Transmission Date: 20140127
  Serious: No
  Sender: FDA-Public Use
  Company Number: US-TEVA-384879USA

PATIENT
  Age: 57 None
  Sex: Male

DRUGS (3)
  1. NUVIGIL [Suspect]
     Indication: SOMNOLENCE
     Dosage: 150 MILLIGRAM DAILY;
     Route: 048
     Dates: start: 20130118
  2. LISINOPRIL [Concomitant]
     Indication: HYPERTENSION
  3. PREVACID [Concomitant]

REACTIONS (1)
  - Insomnia [Not Recovered/Not Resolved]
